FAERS Safety Report 18653634 (Version 1)
Quarter: 2020Q4

REPORT INFORMATION
  Report Type: Spontaneous
  Country: PT (occurrence: PT)
  Receive Date: 20201223
  Receipt Date: 20201223
  Transmission Date: 20210114
  Serious: Yes (Other)
  Sender: FDA-Public Use
  Company Number: PT-HIKMA PHARMACEUTICALS USA INC.-PT-H14001-20-52918

PATIENT
  Age: 66 Year
  Sex: Male

DRUGS (3)
  1. METHYLPREDNISOLONE. [Suspect]
     Active Substance: METHYLPREDNISOLONE
     Indication: HYPEREOSINOPHILIC SYNDROME
     Route: 065
     Dates: end: 201910
  2. HYDROXYUREA. [Concomitant]
     Active Substance: HYDROXYUREA
     Indication: HYPEREOSINOPHILIC SYNDROME
     Dosage: UNKNOWN
     Route: 065
  3. CYCLOPHOSPHAMIDE. [Concomitant]
     Active Substance: CYCLOPHOSPHAMIDE
     Indication: HYPEREOSINOPHILIC SYNDROME
     Dosage: UNKNOWN
     Route: 065

REACTIONS (2)
  - Depression [Unknown]
  - Suicidal ideation [Unknown]

NARRATIVE: CASE EVENT DATE: 201910
